FAERS Safety Report 25148669 (Version 2)
Quarter: 2025Q2

REPORT INFORMATION
  Report Type: Spontaneous
  Country: US (occurrence: US)
  Receive Date: 20250402
  Receipt Date: 20250417
  Transmission Date: 20250717
  Serious: No
  Sender: IPSEN
  Company Number: US-IPSEN Group, Research and Development-2025-07005

PATIENT
  Sex: Female
  Weight: 8.61 kg

DRUGS (10)
  1. BYLVAY [Suspect]
     Active Substance: ODEVIXIBAT
     Indication: Progressive familial intrahepatic cholestasis
     Dosage: SPRINKLE/ MIX 400 MCG TOTAL (2 PELLETS) WITH/ OVER FOOD. DID NOT SWALLOW WHOLE
     Route: 048
  2. BYLVAY [Suspect]
     Active Substance: ODEVIXIBAT
     Dosage: SPRINKLE/ MIX 800 MCG TOTAL (4 PELLETS) WITH/ OVER FOOD. DO NOT SWALLOW WHOLE.
     Route: 048
  3. VITAMIN K [Concomitant]
     Active Substance: PHYTONADIONE
  4. VITAMIN E [Concomitant]
     Active Substance: .ALPHA.-TOCOPHEROL
  5. VITAMIN D-400 [Concomitant]
  6. BENADRYL [Concomitant]
     Active Substance: DIPHENHYDRAMINE HYDROCHLORIDE
  7. HYDROXYZINE HYDROCHLORIDE [Concomitant]
     Active Substance: HYDROXYZINE HYDROCHLORIDE
  8. MINERALS\VITAMINS [Concomitant]
     Active Substance: MINERALS\VITAMINS
  9. RIFAMPIN [Concomitant]
     Active Substance: RIFAMPIN
  10. URSODIOL [Concomitant]
     Active Substance: URSODIOL

REACTIONS (2)
  - Pruritus [Unknown]
  - Drug ineffective [Unknown]
